FAERS Safety Report 18261750 (Version 1)
Quarter: 2020Q3

REPORT INFORMATION
  Report Type: Report from Study
  Country: US (occurrence: US)
  Receive Date: 20200914
  Receipt Date: 20200914
  Transmission Date: 20201103
  Serious: Yes (Other)
  Sender: FDA-Public Use
  Company Number: US-ROCHE-2674696

PATIENT
  Age: 61 Year
  Sex: Male
  Weight: 101.7 kg

DRUGS (5)
  1. VENETOCLAX. [Suspect]
     Active Substance: VENETOCLAX
     Indication: CHRONIC LYMPHOCYTIC LEUKAEMIA
     Dosage: 20 MG PO QD DAYS 1?7 CYCLE 3 50 MG PO QD DAYS 8?14, CYCLE 3 100 MG PO QD
     Route: 048
     Dates: start: 20190228
  2. PEPCID [Concomitant]
     Active Substance: FAMOTIDINE
     Route: 042
  3. OBINUTUZUMAB. [Suspect]
     Active Substance: OBINUTUZUMAB
     Indication: CHRONIC LYMPHOCYTIC LEUKAEMIA
     Dosage: 100 MG IV ON DAY 1, CYCLE 1 00 MG IV ON DAY 2, CYCLE 1 1000 MG IV ON DAY 8, CYCLE 1?1000 MG IV ON DA
     Route: 042
     Dates: start: 20190228
  4. IBRUTINIB [Suspect]
     Active Substance: IBRUTINIB
     Indication: CHRONIC LYMPHOCYTIC LEUKAEMIA
     Dosage: 420 MG PO QD ON DAYS 1?28, CYCLES 1?19
     Route: 048
     Dates: start: 20190228
  5. OBINUTUZUMAB. [Suspect]
     Active Substance: OBINUTUZUMAB
     Dosage: HE WAS RECEIVED 12.5 MG/HOUR FOR 15 MIN THEN 25 MG/HOUR FOR 15 MIN THEN 50 MG/HOUR FOR 15 MIN?RESTAR
     Route: 042

REACTIONS (1)
  - Infusion related reaction [Recovered/Resolved]

NARRATIVE: CASE EVENT DATE: 20190228
